FAERS Safety Report 13400156 (Version 1)
Quarter: 2017Q2

REPORT INFORMATION
  Report Type: Spontaneous
  Country: US (occurrence: US)
  Receive Date: 20170404
  Receipt Date: 20170404
  Transmission Date: 20170830
  Serious: No
  Sender: FDA-Public Use
  Company Number: US-PFIZER INC-2017137506

PATIENT
  Sex: Female

DRUGS (1)
  1. XELJANZ XR [Suspect]
     Active Substance: TOFACITINIB CITRATE
     Dosage: 11 MG, UNK
     Dates: start: 20161101

REACTIONS (14)
  - Nasal discomfort [Unknown]
  - Weight decreased [Unknown]
  - Musculoskeletal stiffness [Unknown]
  - Joint swelling [Unknown]
  - Therapeutic response unexpected [Unknown]
  - Dry eye [Unknown]
  - Syncope [Unknown]
  - Leukocytosis [Unknown]
  - Chills [Unknown]
  - Peripheral swelling [Unknown]
  - Dizziness [Unknown]
  - Depressed mood [Unknown]
  - Headache [Unknown]
  - Sleep disorder [Unknown]
